FAERS Safety Report 14293822 (Version 3)
Quarter: 2018Q1

REPORT INFORMATION
  Report Type: Spontaneous
  Country: US (occurrence: US)
  Receive Date: 20171216
  Receipt Date: 20180314
  Transmission Date: 20180509
  Serious: No
  Sender: FDA-Public Use
  Company Number: US-GLENMARK PHARMACEUTICALS-2017GMK029535

PATIENT

DRUGS (3)
  1. MUPIROCIN. [Suspect]
     Active Substance: MUPIROCIN
     Indication: INFECTION
     Dosage: UNK UNK, BID
     Route: 061
     Dates: start: 20171023, end: 20171024
  2. MUPIROCIN. [Suspect]
     Active Substance: MUPIROCIN
     Indication: CONTUSION
  3. CLINDAMYCIN. [Concomitant]
     Active Substance: CLINDAMYCIN
     Indication: INFECTION
     Dosage: UNK, EVERY 6 HOURS
     Route: 065

REACTIONS (5)
  - Infection [Recovering/Resolving]
  - Drug ineffective [Unknown]
  - Application site pain [Recovering/Resolving]
  - Product quality issue [Unknown]
  - Application site erythema [Recovering/Resolving]

NARRATIVE: CASE EVENT DATE: 20171023
